FAERS Safety Report 9520105 (Version 2)
Quarter: 2013Q4

REPORT INFORMATION
  Report Type: Report from Study
  Country: US (occurrence: US)
  Receive Date: 20130912
  Receipt Date: 20131203
  Transmission Date: 20140711
  Serious: Yes (Hospitalization)
  Sender: FDA-Public Use
  Company Number: PHHO2013US011754

PATIENT
  Age: 35 Year
  Sex: Male
  Weight: 58 kg

DRUGS (7)
  1. AFINITOR [Suspect]
     Indication: THYROID CANCER
     Dosage: UNK
     Route: 048
     Dates: start: 20090915
  2. LEVOTHYROXINE [Concomitant]
  3. CALCIUM CARBONATE [Concomitant]
  4. CALCITRIOL [Concomitant]
  5. MULTI-VIT [Concomitant]
  6. RIVAROXABAN [Concomitant]
  7. TOPROL [Concomitant]

REACTIONS (1)
  - Atrial fibrillation [Recovered/Resolved with Sequelae]
